FAERS Safety Report 13611369 (Version 5)
Quarter: 2017Q4

REPORT INFORMATION
  Report Type: Spontaneous
  Country: JP (occurrence: JP)
  Receive Date: 20170605
  Receipt Date: 20171103
  Transmission Date: 20180320
  Serious: Yes (Death, Life-Threatening, Hospitalization, Other)
  Sender: FDA-Public Use
  Company Number: JP-009507513-1705JPN003214J

PATIENT
  Age: 71 Year
  Sex: Male
  Weight: 65 kg

DRUGS (5)
  1. ACICLOVIR 1A FARMA [Concomitant]
     Dosage: 500 MG, TID
     Route: 065
     Dates: start: 20170418, end: 20170426
  2. TALC [Concomitant]
     Active Substance: TALC
     Indication: LUNG ADENOCARCINOMA
     Dosage: 4 G, QD
     Route: 033
     Dates: start: 20170426, end: 20170426
  3. TALC [Concomitant]
     Active Substance: TALC
     Dosage: 4 G, QD
     Route: 033
     Dates: start: 20170428, end: 20170428
  4. BISOLVON [Concomitant]
     Active Substance: BROMHEXINE HYDROCHLORIDE
     Indication: LUNG ADENOCARCINOMA
     Dosage: 4 MG, BID
     Route: 051
     Dates: start: 20170426, end: 20170513
  5. KEYTRUDA [Suspect]
     Active Substance: PEMBROLIZUMAB
     Indication: LUNG ADENOCARCINOMA
     Dosage: 200 MG, Q3W
     Route: 041
     Dates: start: 20170420, end: 20170420

REACTIONS (5)
  - Lung infection [Fatal]
  - Skin infection [Fatal]
  - Pleural infection [Fatal]
  - Pneumonia [Fatal]
  - Infectious pleural effusion [Fatal]

NARRATIVE: CASE EVENT DATE: 20170429
